FAERS Safety Report 20710240 (Version 1)
Quarter: 2022Q2

REPORT INFORMATION
  Report Type: Spontaneous
  Country: US (occurrence: None)
  Receive Date: 20220414
  Receipt Date: 20220414
  Transmission Date: 20220721
  Serious: Yes (Hospitalization)
  Sender: FDA-Public Use
  Company Number: None

PATIENT
  Age: 54 Year
  Sex: Female
  Weight: 67.5 kg

DRUGS (1)
  1. .DELTA.8-TETRAHYDROCANNABINOL\HERBALS [Suspect]
     Active Substance: .DELTA.8-TETRAHYDROCANNABINOL\HERBALS
     Indication: Pain
     Dates: start: 20220413, end: 20220413

REACTIONS (11)
  - Vertigo [None]
  - Gait inability [None]
  - Hypopnoea [None]
  - Tremor [None]
  - Muscle twitching [None]
  - Hypoaesthesia [None]
  - Feeling cold [None]
  - Hypoaesthesia [None]
  - Hallucination [None]
  - Palpitations [None]
  - Nausea [None]

NARRATIVE: CASE EVENT DATE: 20220413
